FAERS Safety Report 9102376 (Version 1)
Quarter: 2013Q1

REPORT INFORMATION
  Report Type: Spontaneous
  Country: FR (occurrence: FR)
  Receive Date: 20130219
  Receipt Date: 20130219
  Transmission Date: 20140127
  Serious: Yes (Hospitalization)
  Sender: FDA-Public Use
  Company Number: FR-JNJFOC-20130203525

PATIENT
  Age: 79 Year
  Sex: Female

DRUGS (13)
  1. DUROGESIC [Suspect]
     Indication: NEURALGIA
     Route: 062
     Dates: end: 20130102
  2. OXYNORM [Suspect]
     Indication: NEURALGIA
     Route: 048
     Dates: end: 20121229
  3. LYRICA [Suspect]
     Indication: NEURALGIA
     Route: 048
  4. LYRICA [Suspect]
     Indication: NEURALGIA
     Route: 048
     Dates: end: 20130104
  5. LAROXYL [Suspect]
     Indication: PRODUCT USED FOR UNKNOWN INDICATION
     Dosage: 20 DROPS IN THE EVENING
     Route: 048
  6. LAROXYL [Suspect]
     Indication: PRODUCT USED FOR UNKNOWN INDICATION
     Dosage: LAXORYL 40 MG/ML, 18 DROPS PER DAY
     Route: 048
     Dates: start: 2009, end: 20130104
  7. COAPROVEL [Concomitant]
     Indication: PRODUCT USED FOR UNKNOWN INDICATION
     Dosage: DOSAGE 150 MG/12.5 MG
     Route: 048
     Dates: start: 1990
  8. UVEDOSE [Concomitant]
     Indication: PRODUCT USED FOR UNKNOWN INDICATION
     Route: 048
     Dates: start: 201206
  9. TRIATEC [Concomitant]
     Indication: HYPERTENSION
     Route: 048
     Dates: start: 1992
  10. IMPORTAL [Concomitant]
     Indication: CONSTIPATION
     Route: 048
  11. LEVOTHYROX [Concomitant]
     Indication: HYPOTHYROIDISM
     Route: 048
     Dates: start: 2006
  12. DUPHALAC [Concomitant]
     Indication: CONSTIPATION
     Route: 048
     Dates: end: 20121229
  13. DIFFU-K [Concomitant]
     Indication: PRODUCT USED FOR UNKNOWN INDICATION
     Route: 065

REACTIONS (3)
  - Somnolence [Recovered/Resolved]
  - Myoclonus [Recovered/Resolved]
  - Miosis [Recovered/Resolved]
